FAERS Safety Report 8664022 (Version 2)
Quarter: 2012Q4

REPORT INFORMATION
  Report Type: 
  Country: BR (occurrence: BR)
  Receive Date: 20120713
  Receipt Date: 20121001
  Transmission Date: 20130627
  Serious: Yes (Hospitalization)
  Sender: FDA-Public Use
  Company Number: BR-009507513-1207BRA002803

PATIENT

DRUGS (3)
  1. CLARITIN [Suspect]
     Indication: PRODUCT USED FOR UNKNOWN INDICATION
     Dosage: 10 mg, Once
     Dates: start: 20120525, end: 20120525
  2. BETAMETHASONE (+) LORATADINE [Suspect]
     Dosage: 0.25g/5mg, 2 tablets, Once
     Route: 048
     Dates: start: 20120511, end: 20120511
  3. CELESTONE (BETAMETHASONE) [Concomitant]
     Indication: PRODUCT USED FOR UNKNOWN INDICATION
     Dosage: 0.5 mg, Once
     Route: 048
     Dates: start: 20120525, end: 20120525

REACTIONS (1)
  - Gastric ulcer [Recovering/Resolving]
